FAERS Safety Report 10450904 (Version 2)
Quarter: 2014Q4

REPORT INFORMATION
  Report Type: Spontaneous
  Country: BR (occurrence: BR)
  Receive Date: 20140912
  Receipt Date: 20141014
  Transmission Date: 20150528
  Serious: Yes (Life-Threatening, Other)
  Sender: FDA-Public Use
  Company Number: PHHY2014BR118264

PATIENT
  Age: 63 Year
  Sex: Female

DRUGS (2)
  1. RASILEZ HCT [Suspect]
     Active Substance: ALISKIREN\HYDROCHLOROTHIAZIDE
     Indication: HYPERTENSION
     Dosage: 1 DF, DAILY
     Route: 048
  2. PURAN [Concomitant]
     Active Substance: LEVOTHYROXINE SODIUM
     Indication: HYPOTHYROIDISM
     Dosage: 150 MG, DAILY
     Route: 048

REACTIONS (6)
  - Blood pressure decreased [Recovered/Resolved]
  - Affective disorder [Recovered/Resolved]
  - Dehydration [Recovered/Resolved]
  - Emotional disorder [Not Recovered/Not Resolved]
  - Blood potassium decreased [Recovered/Resolved]
  - Apparent death [Recovered/Resolved]

NARRATIVE: CASE EVENT DATE: 20140903
